FAERS Safety Report 7438169-7 (Version None)
Quarter: 2011Q2

REPORT INFORMATION
  Report Type: 
  Country: None (occurrence: None)
  Receive Date: 20110426
  Receipt Date: 20101209
  Transmission Date: 20111010
  Serious: Yes (Hospitalization, Other)
  Sender: FDA-Public Use
  Company Number: US-BAYER-201030364NA

PATIENT
  Age: 36 Year
  Sex: Female
  Weight: 91 kg

DRUGS (8)
  1. AZITHROMYCIN [Concomitant]
     Indication: COUGH
  2. ZITHROMAX [Concomitant]
  3. PRENATAL VITAMINS [Concomitant]
     Indication: UNEVALUABLE EVENT
     Dosage: UNK
     Dates: start: 20020101
  4. YAZ [Suspect]
     Indication: PREMENSTRUAL SYNDROME
     Dosage: UNK UNK, UNK
     Route: 048
     Dates: start: 20070601, end: 20070801
  5. MULTI-VITAMINS [Concomitant]
  6. AZITHROMYCIN [Concomitant]
     Indication: DYSPNOEA
  7. COMPAZINE [Concomitant]
  8. IBUPROFEN (ADVIL) [Concomitant]

REACTIONS (1)
  - PULMONARY EMBOLISM [None]
